FAERS Safety Report 23089297 (Version 2)
Quarter: 2023Q4

REPORT INFORMATION
  Report Type: Report from Study
  Country: US (occurrence: US)
  Receive Date: 20231020
  Receipt Date: 20231030
  Transmission Date: 20240109
  Serious: Yes (Hospitalization)
  Sender: FDA-Public Use
  Company Number: US-PFIZER INC-PV202300162763

PATIENT
  Age: 50 Year
  Sex: Female
  Weight: 76 kg

DRUGS (3)
  1. BAVENCIO [Suspect]
     Active Substance: AVELUMAB
     Indication: Breast cancer
     Dosage: 800 MG, Q2W
     Route: 042
     Dates: start: 20230912, end: 20230926
  2. BINIMETINIB [Suspect]
     Active Substance: BINIMETINIB
     Indication: Breast cancer
     Dosage: 45 MG, BID
     Route: 048
     Dates: start: 20230829, end: 20230926
  3. DOXORUBICIN HYDROCHLORIDE [Suspect]
     Active Substance: DOXORUBICIN HYDROCHLORIDE
     Indication: Breast cancer
     Dosage: 80 MG, Q4W
     Route: 042
     Dates: start: 20230912, end: 20230926

REACTIONS (1)
  - Hypotension [Not Recovered/Not Resolved]

NARRATIVE: CASE EVENT DATE: 20230926
